FAERS Safety Report 24300584 (Version 1)
Quarter: 2024Q3

REPORT INFORMATION
  Report Type: Spontaneous
  Country: US (occurrence: US)
  Receive Date: 20240910
  Receipt Date: 20240910
  Transmission Date: 20241016
  Serious: Yes (Hospitalization)
  Sender: Haleon PLC
  Company Number: US-HALEON-2195430

PATIENT
  Age: 52 Year
  Sex: Female

DRUGS (1)
  1. TUMS CHEWY BITES WITH GAS RELIEF [Suspect]
     Active Substance: CALCIUM CARBONATE\DIMETHICONE
     Indication: Product used for unknown indication
     Dosage: EXPDATE:20260930
     Dates: start: 20240831, end: 20240831

REACTIONS (3)
  - Ill-defined disorder [Recovering/Resolving]
  - Condition aggravated [Recovering/Resolving]
  - Vomiting [Recovering/Resolving]

NARRATIVE: CASE EVENT DATE: 20240831
